FAERS Safety Report 6741881-6 (Version None)
Quarter: 2010Q2

REPORT INFORMATION
  Report Type: 
  Country: None (occurrence: None)
  Receive Date: 20100526
  Receipt Date: 20100519
  Transmission Date: 20101027
  Serious: Yes (Hospitalization)
  Sender: FDA-Public Use
  Company Number: A0791267A

PATIENT
  Age: 62 Year
  Sex: Male

DRUGS (2)
  1. AVANDIA [Suspect]
     Route: 065
     Dates: start: 20000101, end: 20050223
  2. AVANDAMET [Suspect]
     Dates: start: 20050323, end: 20061104

REACTIONS (1)
  - MYOCARDIAL INFARCTION [None]
